FAERS Safety Report 5445420-1 (Version None)
Quarter: 2007Q3

REPORT INFORMATION
  Report Type: 
  Country: None (occurrence: None)
  Receive Date: 20070906
  Receipt Date: 20070620
  Transmission Date: 20080115
  Serious: No
  Sender: FDA-Public Use
  Company Number: A0660008A

PATIENT
  Sex: Female

DRUGS (1)
  1. REQUIP [Suspect]
     Indication: RESTLESS LEGS SYNDROME
     Route: 048
     Dates: start: 20070605, end: 20070601

REACTIONS (4)
  - DISCOMFORT [None]
  - PRURITUS [None]
  - SKIN LESION [None]
  - URTICARIA [None]
